FAERS Safety Report 26025621 (Version 1)
Quarter: 2025Q4

REPORT INFORMATION
  Report Type: Spontaneous
  Country: EU (occurrence: EU)
  Receive Date: 20251111
  Receipt Date: 20251111
  Transmission Date: 20260118
  Serious: Yes (Other)
  Sender: RANBAXY
  Company Number: None

PATIENT
  Age: 58 Year
  Sex: Male

DRUGS (4)
  1. AMLODIPINE [Suspect]
     Active Substance: AMLODIPINE BESYLATE
     Indication: Hypertension
     Dosage: 5 MILLIGRAM
     Route: 065
     Dates: start: 202302
  2. MYCOPHENOLATE MOFETIL [Suspect]
     Active Substance: MYCOPHENOLATE MOFETIL
     Indication: Immunosuppressant drug therapy
     Dosage: 500 MILLIGRAM
     Route: 065
     Dates: start: 2016
  3. METFORMIN [Concomitant]
     Active Substance: METFORMIN HYDROCHLORIDE
     Indication: Type 1 diabetes mellitus
     Dosage: UNK
     Route: 065
  4. TACROLIMUS [Concomitant]
     Active Substance: TACROLIMUS
     Indication: Immunosuppressant drug therapy
     Dosage: UNK
     Route: 065
     Dates: start: 2016

REACTIONS (2)
  - Gingival hypertrophy [Recovered/Resolved]
  - Periodontitis [Recovered/Resolved]
